FAERS Safety Report 13670451 (Version 1)
Quarter: 2017Q2

REPORT INFORMATION
  Report Type: Spontaneous
  Country: US (occurrence: US)
  Receive Date: 20170620
  Receipt Date: 20170620
  Transmission Date: 20170830
  Serious: Yes (Hospitalization)
  Sender: FDA-Public Use
  Company Number: US-ABBVIE-17P-163-2011959-00

PATIENT
  Sex: Female
  Weight: 69 kg

DRUGS (1)
  1. LEVOTHYROXINE. [Suspect]
     Active Substance: LEVOTHYROXINE
     Indication: AUTOIMMUNE THYROIDITIS
     Dosage: 100 MCG QD., LEVOTHYROXINE SODIUM
     Route: 048
     Dates: start: 2002

REACTIONS (3)
  - Fibromyalgia [Unknown]
  - Movement disorder [Unknown]
  - Hypertension [Unknown]
